FAERS Safety Report 7409613-6 (Version None)
Quarter: 2011Q2

REPORT INFORMATION
  Report Type: 
  Country: None (occurrence: None)
  Receive Date: 20110407
  Receipt Date: 20110407
  Transmission Date: 20111010
  Serious: Yes (Hospitalization)
  Sender: FDA-Public Use
  Company Number: None

PATIENT
  Age: 55 Year
  Sex: Male
  Weight: 88 kg

DRUGS (2)
  1. DIVALPROEX [Suspect]
     Indication: SCHIZOAFFECTIVE DISORDER
     Dates: end: 20101215
  2. DIVALPROEX [Suspect]
     Indication: BIPOLAR I DISORDER
     Dates: end: 20101215

REACTIONS (10)
  - COGNITIVE DISORDER [None]
  - TOXICITY TO VARIOUS AGENTS [None]
  - TREMOR [None]
  - DELIRIUM [None]
  - VITAMIN D DECREASED [None]
  - TOXIC ENCEPHALOPATHY [None]
  - ABNORMAL BEHAVIOUR [None]
  - DISORIENTATION [None]
  - AFFECT LABILITY [None]
  - HALLUCINATION, VISUAL [None]
